FAERS Safety Report 6623430-6 (Version None)
Quarter: 2010Q1

REPORT INFORMATION
  Report Type: 
  Country: None (occurrence: None)
  Receive Date: 20100310
  Receipt Date: 20100226
  Transmission Date: 20100710
  Serious: Yes (Hospitalization)
  Sender: FDA-Public Use
  Company Number: US-GENZYME-FABR-1001192

PATIENT
  Sex: Male

DRUGS (55)
  1. FABRAZYME [Suspect]
     Indication: FABRY'S DISEASE
     Dosage: UNK
     Route: 042
     Dates: start: 20091001
  2. FABRAZYME [Suspect]
     Dosage: UNK
     Dates: start: 20051024
  3. ARANESP [Concomitant]
     Indication: DRUG USE FOR UNKNOWN INDICATION
     Dosage: 80 MCG, 1X/W
     Route: 042
     Dates: start: 20100217
  4. ARANESP [Concomitant]
     Dosage: 60 MCG, 1X/W
     Route: 042
     Dates: start: 20100208, end: 20100216
  5. ARANESP [Concomitant]
     Dosage: 60 MCG, 1X/W
     Route: 042
     Dates: start: 20090923, end: 20100208
  6. BENADRYL [Concomitant]
     Indication: PRURITUS
     Dosage: 50 MG, PRN
     Route: 042
     Dates: start: 20100208
  7. BENADRYL [Concomitant]
     Dosage: 50 MG, PRN
     Route: 042
     Dates: start: 20090503, end: 20100208
  8. DILAUDID [Concomitant]
     Indication: PAIN
     Dosage: 1 MG, PRN
     Route: 042
     Dates: start: 20100208
  9. DILAUDID [Concomitant]
     Dosage: 1 MG, PRN
     Route: 042
     Dates: start: 20091120, end: 20100208
  10. HECTOROL [Concomitant]
     Indication: DIALYSIS
     Dosage: 3.5 MCG, QW
     Route: 042
     Dates: start: 20100211
  11. HECTOROL [Concomitant]
     Dosage: 3 MCG, 1X/W
     Route: 042
  12. HECTOROL [Concomitant]
     Dosage: 3.5 MCG, 1X/W
     Route: 042
     Dates: start: 20100211, end: 20100211
  13. HECTOROL [Concomitant]
     Dosage: 4 MCG, 1X/W
     Route: 042
     Dates: start: 20100208, end: 20100211
  14. HECTOROL [Concomitant]
     Dosage: 4 MCG, 1X/W
     Route: 042
     Dates: start: 20091118, end: 20100208
  15. PHENERGAN HCL [Concomitant]
     Indication: NAUSEA
     Dosage: 12.5 MG, PRN
     Route: 042
     Dates: start: 20100208
  16. PHENERGAN HCL [Concomitant]
     Dosage: 12.5 MG, PRN
     Route: 042
     Dates: start: 20081119, end: 20100208
  17. PHENERGAN HCL [Concomitant]
     Dosage: 25 MG, PRN
     Route: 054
     Dates: start: 20090505, end: 20100208
  18. VENOFER [Concomitant]
     Indication: DIALYSIS
     Dosage: 50 MG, 1X/W
     Dates: start: 20100208
  19. VENOFER [Concomitant]
     Dosage: 50 MG, 1X/W
     Dates: start: 20091209, end: 20100208
  20. VICODIN [Concomitant]
     Indication: PAIN
     Dosage: UNK
     Dates: start: 20100208
  21. VICODIN [Concomitant]
     Dosage: UNK
     Dates: start: 20090928, end: 20100208
  22. ALBUTEROL [Concomitant]
     Indication: DYSPNOEA
     Dosage: UNK
     Dates: start: 20100208
  23. ALBUTEROL [Concomitant]
     Dosage: UNK
     Dates: start: 20080816, end: 20100208
  24. DILAUDID [Concomitant]
     Dosage: 2 MG, PRN
     Route: 048
     Dates: start: 20100208
  25. PERCOCET [Concomitant]
     Indication: PAIN
     Dosage: UNK
     Dates: start: 20100219
  26. XANAX [Concomitant]
     Indication: ANXIETY
     Dosage: 0.5 MG, PRN
     Dates: start: 20100208
  27. XANAX [Concomitant]
     Dosage: 0.5 MG, PRN
     Route: 048
     Dates: start: 20080806, end: 20100208
  28. CATAPRES-TTS-1 [Concomitant]
     Indication: DRUG USE FOR UNKNOWN INDICATION
     Dosage: UNK
     Route: 061
     Dates: start: 20100208
  29. CATAPRES-TTS-1 [Concomitant]
     Dosage: UNK
     Route: 061
     Dates: start: 20080816, end: 20100208
  30. DIALYVITE WITH ZINC [Concomitant]
     Indication: DRUG USE FOR UNKNOWN INDICATION
     Dosage: UNK
     Dates: start: 20100208
  31. DIALYVITE WITH ZINC [Concomitant]
     Dosage: UNK
     Route: 048
     Dates: start: 20080506, end: 20100208
  32. DILANTIN [Concomitant]
     Indication: DRUG USE FOR UNKNOWN INDICATION
     Dosage: 200 MG, BID
     Route: 048
     Dates: start: 20100208
  33. DILANTIN [Concomitant]
     Dosage: 200 MG, BID
     Route: 048
     Dates: start: 20080816, end: 20100208
  34. FUROSEMIDE [Concomitant]
     Indication: DRUG USE FOR UNKNOWN INDICATION
     Dosage: 80 MG, TID
     Route: 048
     Dates: start: 20100208
  35. FUROSEMIDE [Concomitant]
     Dosage: 80 MG, TID
     Route: 048
     Dates: start: 20080927, end: 20100208
  36. GABAPENTIN [Concomitant]
     Indication: DRUG USE FOR UNKNOWN INDICATION
     Dosage: 300 MG, BID
     Route: 048
     Dates: start: 20100208
  37. GABAPENTIN [Concomitant]
     Dosage: 300 MG, BID
     Route: 048
     Dates: start: 20090526, end: 20100208
  38. PHOSLO GELCAP [Concomitant]
     Indication: DRUG USE FOR UNKNOWN INDICATION
     Dosage: 1334 MG, TID
     Route: 048
     Dates: start: 20100208
  39. PHOSLO GELCAP [Concomitant]
     Dosage: UNK
     Route: 048
     Dates: start: 20081216, end: 20100208
  40. SENSIPAR [Concomitant]
     Indication: DRUG USE FOR UNKNOWN INDICATION
     Dosage: 30 MG, QD
     Route: 048
     Dates: start: 20100208
  41. SENSIPAR [Concomitant]
     Dosage: 180 MG, QD
     Route: 048
     Dates: start: 20090610, end: 20100208
  42. VISTARIL [Concomitant]
     Indication: PAIN
     Dosage: 25 MG, Q4HR
     Route: 048
     Dates: start: 20100208
  43. CLONIDINE [Concomitant]
     Indication: DRUG USE FOR UNKNOWN INDICATION
     Dosage: 0.2 MG, ONCE
     Route: 048
     Dates: start: 20090925, end: 20100208
  44. METOCLOPRAMIDE [Concomitant]
     Indication: VOMITING
     Dosage: 5 MG, PRN
     Route: 048
     Dates: start: 20090305, end: 20100208
  45. MORPHINE [Concomitant]
     Indication: PAIN
     Dosage: 15 MG, PRN
     Route: 048
     Dates: start: 20090305, end: 20100208
  46. TYLENOL-500 [Concomitant]
     Indication: PAIN
     Dosage: 325 MG, PRN
     Route: 048
     Dates: start: 20090327, end: 20100208
  47. TYLENOL-500 [Concomitant]
     Indication: BODY TEMPERATURE INCREASED
  48. CARDIZEM CD [Concomitant]
     Indication: DRUG USE FOR UNKNOWN INDICATION
     Dosage: 120 MG, QD
     Route: 048
     Dates: start: 20080927, end: 20100208
  49. ERGOCALCIFEROL [Concomitant]
     Indication: DRUG USE FOR UNKNOWN INDICATION
     Dosage: 50000 U, Q4W
     Route: 048
     Dates: start: 20090102, end: 20100208
  50. HYDRALAZINE HCL [Concomitant]
     Indication: DRUG USE FOR UNKNOWN INDICATION
     Dosage: 10 MG, QID
     Route: 048
     Dates: start: 20080927, end: 20100208
  51. NICOTINE [Concomitant]
     Indication: DRUG USE FOR UNKNOWN INDICATION
     Dosage: 22 MG, QD
     Route: 062
     Dates: start: 20080816, end: 20100208
  52. NITROGLYCERIN [Concomitant]
     Indication: CHEST PAIN
     Dosage: 0.4 MG, PRN
     Route: 060
     Dates: start: 20080506, end: 20100208
  53. PROTONIX [Concomitant]
     Indication: DRUG USE FOR UNKNOWN INDICATION
     Dosage: 40 MG, QD
     Route: 048
     Dates: start: 20080605, end: 20100208
  54. RENAGEL [Concomitant]
     Indication: DRUG USE FOR UNKNOWN INDICATION
     Dosage: UNK
     Route: 048
     Dates: start: 20081216, end: 20100208
  55. VALSARTAN [Concomitant]
     Indication: DRUG USE FOR UNKNOWN INDICATION
     Dosage: 80 MG, QD
     Route: 048
     Dates: start: 20080927, end: 20100208

REACTIONS (11)
  - CARDIAC FAILURE CONGESTIVE [None]
  - CONDITION AGGRAVATED [None]
  - ERYTHEMA [None]
  - FABRY'S DISEASE [None]
  - FOOT FRACTURE [None]
  - INFUSION RELATED REACTION [None]
  - LYMPHOEDEMA [None]
  - PAIN [None]
  - RENAL IMPAIRMENT [None]
  - SLEEP APNOEA SYNDROME [None]
  - TREATMENT NONCOMPLIANCE [None]
